FAERS Safety Report 7126636-5 (Version None)
Quarter: 2010Q4

REPORT INFORMATION
  Report Type: 
  Country: None (occurrence: None)
  Receive Date: 20101129
  Receipt Date: 20101122
  Transmission Date: 20110411
  Serious: Yes (Other)
  Sender: FDA-Public Use
  Company Number: US-ABBOTT-10P-163-0683778-00

PATIENT
  Sex: Male
  Weight: 115.77 kg

DRUGS (6)
  1. HUMIRA [Suspect]
     Indication: CROHN'S DISEASE
     Dates: start: 20091201, end: 20101101
  2. HUMIRA [Suspect]
  3. HYDROCHLOROTHIAZIDE [Concomitant]
     Indication: PRODUCT USED FOR UNKNOWN INDICATION
  4. ZOLOFT [Concomitant]
     Indication: ANXIETY
  5. ERGOCALCIFEROL [Concomitant]
     Indication: VITAMIN D DEFICIENCY
  6. IRON [Concomitant]
     Indication: ANAEMIA

REACTIONS (1)
  - ABDOMINAL HERNIA [None]
